FAERS Safety Report 10098648 (Version 1)
Quarter: 2014Q2

REPORT INFORMATION
  Report Type: Spontaneous
  Country: US (occurrence: US)
  Receive Date: 20140423
  Receipt Date: 20140423
  Transmission Date: 20141212
  Serious: Yes (Hospitalization)
  Sender: FDA-Public Use
  Company Number: US-NOVOPROD-406781

PATIENT
  Age: 59 Year
  Sex: Male
  Weight: 123.81 kg

DRUGS (1)
  1. VICTOZA [Suspect]
     Indication: TYPE 2 DIABETES MELLITUS
     Dosage: 1.8 MG, QD
     Route: 058
     Dates: start: 201401

REACTIONS (2)
  - Lipase increased [Recovering/Resolving]
  - Abdominal pain upper [Recovering/Resolving]
